FAERS Safety Report 7956074-4 (Version None)
Quarter: 2011Q4

REPORT INFORMATION
  Report Type: 
  Country: None (occurrence: None)
  Receive Date: 20111205
  Receipt Date: 20111130
  Transmission Date: 20120403
  Serious: No
  Sender: FDA-Public Use
  Company Number: US-PFIZER INC-2011292820

PATIENT
  Sex: Female
  Weight: 50.794 kg

DRUGS (4)
  1. LYRICA [Suspect]
     Indication: BACK DISORDER
     Dosage: 150 MG, 3X/DAY
     Route: 048
     Dates: start: 20100601
  2. BACLOFEN [Concomitant]
     Dosage: UNK
  3. FENTANYL [Concomitant]
     Dosage: UNK
  4. LYRICA [Suspect]
     Indication: NEURALGIA
     Dosage: 150 MG, 1X/DAY
     Route: 048

REACTIONS (5)
  - BURNING SENSATION [None]
  - SKIN DISORDER [None]
  - HYPERSENSITIVITY [None]
  - ERYTHEMA [None]
  - URTICARIA [None]
